FAERS Safety Report 4439841-3 (Version None)
Quarter: 2004Q3

REPORT INFORMATION
  Report Type: 
  Country: None (occurrence: None)
  Receive Date: 20040831
  Receipt Date: 20040826
  Transmission Date: 20050211
  Serious: Yes (Death)
  Sender: FDA-Public Use
  Company Number: KII-2000-0002167

PATIENT
  Sex: Male

DRUGS (2)
  1. OXYCONTIN [Suspect]
     Indication: CANCER PAIN
     Dosage: 80 MG, Q12H
  2. DILAUDID [Suspect]
     Indication: CANCER PAIN
     Dosage: SEE IMAGE
     Route: 042

REACTIONS (1)
  - DEATH [None]
